FAERS Safety Report 6557492-1 (Version None)
Quarter: 2010Q1

REPORT INFORMATION
  Report Type: 
  Country: None (occurrence: None)
  Receive Date: 20100129
  Receipt Date: 20100120
  Transmission Date: 20100710
  Serious: Yes (Hospitalization)
  Sender: FDA-Public Use
  Company Number: TW-ROCHE-680510

PATIENT
  Age: 36 Year
  Sex: Male
  Weight: 94 kg

DRUGS (2)
  1. XELODA [Suspect]
     Route: 065
     Dates: start: 20100101
  2. CAMPTOSAR [Suspect]
     Route: 065
     Dates: start: 20100101, end: 20100101

REACTIONS (1)
  - RHABDOMYOLYSIS [None]
